FAERS Safety Report 7147900-X (Version None)
Quarter: 2010Q4

REPORT INFORMATION
  Report Type: 
  Country: None (occurrence: None)
  Receive Date: 20101206
  Receipt Date: 20101206
  Transmission Date: 20110411
  Serious: Yes (Hospitalization)
  Sender: FDA-Public Use
  Company Number: None

PATIENT
  Age: 63 Year
  Sex: Male
  Weight: 56.2 kg

DRUGS (1)
  1. BUPRENORPHINE/NALOXONE [Suspect]
     Indication: SUBSTANCE ABUSE
     Dosage: 4 TAB ONCE SUBLINGUAL
     Route: 060
     Dates: start: 20100921, end: 20100922

REACTIONS (4)
  - AGITATION [None]
  - DISTURBANCE IN ATTENTION [None]
  - MEMORY IMPAIRMENT [None]
  - MENTAL STATUS CHANGES [None]
